FAERS Safety Report 23335686 (Version 2)
Quarter: 2024Q1

REPORT INFORMATION
  Report Type: Spontaneous
  Country: US (occurrence: US)
  Receive Date: 20231225
  Receipt Date: 20240118
  Transmission Date: 20240409
  Serious: Yes (Other)
  Sender: FDA-Public Use
  Company Number: US-AMGEN-USASP2023227144

PATIENT
  Sex: Female

DRUGS (3)
  1. PROLIA [Suspect]
     Active Substance: DENOSUMAB
     Indication: Product used for unknown indication
     Dosage: 60 MILLIGRAM, Q6MO
     Route: 065
     Dates: start: 202104
  2. PROLIA [Suspect]
     Active Substance: DENOSUMAB
     Dosage: UNK, Q6MO
     Route: 065
     Dates: start: 20231122
  3. BONIVA [Concomitant]
     Active Substance: IBANDRONATE SODIUM
     Route: 065

REACTIONS (3)
  - Arthropathy [Unknown]
  - Dental restoration failure [Unknown]
  - Tooth infection [Unknown]

NARRATIVE: CASE EVENT DATE: 20231201
